FAERS Safety Report 7442832-1 (Version None)
Quarter: 2011Q2

REPORT INFORMATION
  Report Type: 
  Country: None (occurrence: None)
  Receive Date: 20110425
  Receipt Date: 20110425
  Transmission Date: 20111010
  Serious: Yes (Hospitalization, Other)
  Sender: FDA-Public Use
  Company Number: None

PATIENT
  Age: 36 Year
  Sex: Male
  Weight: 94.3482 kg

DRUGS (2)
  1. CITALOPRAM HYDROBROMIDE [Suspect]
     Indication: PANIC DISORDER
     Dosage: 40 MG ONCE DAILY
     Dates: start: 20110110, end: 20110407
  2. CITALOPRAM HYDROBROMIDE [Suspect]
     Indication: ANXIETY
     Dosage: 40 MG ONCE DAILY
     Dates: start: 20110110, end: 20110407

REACTIONS (6)
  - VISUAL IMPAIRMENT [None]
  - PRODUCT SUBSTITUTION ISSUE [None]
  - HALLUCINATION [None]
  - BLOOD PRESSURE DIASTOLIC INCREASED [None]
  - HEART RATE IRREGULAR [None]
  - SOMNOLENCE [None]
